FAERS Safety Report 6336397-5 (Version None)
Quarter: 2009Q3

REPORT INFORMATION
  Report Type: 
  Country: None (occurrence: None)
  Receive Date: 20090827
  Receipt Date: 20090818
  Transmission Date: 20100115
  Serious: Yes (Life-Threatening, Other)
  Sender: FDA-Public Use
  Company Number: ADR13072009

PATIENT
  Age: 48 Year
  Sex: Female

DRUGS (2)
  1. CITALOPRAM HYDROBROMIDE [Suspect]
     Dosage: 20MG ORAL
     Route: 048
  2. EPIPEN [Concomitant]

REACTIONS (2)
  - ANAPHYLACTOID REACTION [None]
  - DRUG INEFFECTIVE [None]
